FAERS Safety Report 18323052 (Version 1)
Quarter: 2020Q3

REPORT INFORMATION
  Report Type: Other
  Country: GB (occurrence: GB)
  Receive Date: 20200929
  Receipt Date: 20200929
  Transmission Date: 20201103
  Serious: Yes (Other)
  Sender: FDA-Public Use
  Company Number: GB-ASTELLAS-2020US033650

PATIENT
  Sex: Male

DRUGS (1)
  1. SOLIFENACIN [Suspect]
     Active Substance: SOLIFENACIN
     Indication: HYPERTONIC BLADDER
     Route: 065

REACTIONS (4)
  - Drug ineffective [Unknown]
  - Suspected counterfeit product [Unknown]
  - Product substitution issue [Unknown]
  - Nervous system disorder [Not Recovered/Not Resolved]
